FAERS Safety Report 9535558 (Version 1)
Quarter: 2013Q3

REPORT INFORMATION
  Report Type: Spontaneous
  Country: US (occurrence: US)
  Receive Date: 20130919
  Receipt Date: 20130919
  Transmission Date: 20140515
  Serious: Yes (Other)
  Sender: FDA-Public Use
  Company Number: US-AMGEN-USASP2013064378

PATIENT
  Age: 78 Year
  Sex: Female

DRUGS (1)
  1. PROLIA [Suspect]
     Indication: OSTEOPOROSIS POSTMENOPAUSAL
     Route: 065

REACTIONS (15)
  - Neoplasm skin [Unknown]
  - Skin papilloma [Unknown]
  - Influenza like illness [Unknown]
  - Dizziness [Unknown]
  - Dandruff [Unknown]
  - Dry skin [Unknown]
  - Generalised erythema [Unknown]
  - Rash generalised [Unknown]
  - Impaired healing [Unknown]
  - Ear infection [Unknown]
  - White blood cell count decreased [Unknown]
  - Rash maculo-papular [Unknown]
  - Back pain [Unknown]
  - Vertigo [Unknown]
  - Eczema [Unknown]
